FAERS Safety Report 7186773-6 (Version None)
Quarter: 2010Q4

REPORT INFORMATION
  Report Type: 
  Country: None (occurrence: None)
  Receive Date: 20101222
  Receipt Date: 20101208
  Transmission Date: 20110411
  Serious: Yes (Other)
  Sender: FDA-Public Use
  Company Number: GB-BAUSCH-2010BL006973

PATIENT
  Age: 53 Year
  Sex: Female

DRUGS (5)
  1. DEXAMETHASONE [Suspect]
     Indication: PRODUCT USED FOR UNKNOWN INDICATION
     Dates: start: 20090101
  2. BUPIVACAINE [Suspect]
     Indication: SPINAL ANAESTHESIA
  3. DIAMORPHINE [Suspect]
     Indication: SPINAL ANAESTHESIA
  4. ESTRADIOL [Suspect]
     Indication: PRODUCT USED FOR UNKNOWN INDICATION
  5. BENDROFLUAZIDE [Concomitant]
     Indication: PRODUCT USED FOR UNKNOWN INDICATION

REACTIONS (1)
  - MYOCLONUS [None]
